FAERS Safety Report 6912480-8 (Version None)
Quarter: 2010Q3

REPORT INFORMATION
  Report Type: 
  Country: None (occurrence: None)
  Receive Date: 20100806
  Receipt Date: 20080611
  Transmission Date: 20110219
  Serious: No
  Sender: FDA-Public Use
  Company Number: US-PFIZER INC-2008050142

PATIENT
  Sex: Female
  Weight: 70.5 kg

DRUGS (4)
  1. DETROL LA [Suspect]
     Indication: MICTURITION URGENCY
     Dates: start: 20080401
  2. PRILOSEC [Concomitant]
  3. ZANTAC [Concomitant]
  4. COZAAR [Concomitant]

REACTIONS (2)
  - DIZZINESS [None]
  - DRY MOUTH [None]
